FAERS Safety Report 8346417-4 (Version None)
Quarter: 2012Q2

REPORT INFORMATION
  Report Type: 
  Country: None (occurrence: None)
  Receive Date: 20120507
  Receipt Date: 20120507
  Transmission Date: 20120825
  Serious: Yes (Death)
  Sender: FDA-Public Use
  Company Number: None

PATIENT
  Age: 62 Year
  Sex: Female
  Weight: 113 kg

DRUGS (3)
  1. RIDAFOROLIMUS [Suspect]
     Indication: FALLOPIAN TUBE CANCER
     Dosage: 10 MG PO
     Route: 048
     Dates: start: 20111117, end: 20111120
  2. CARBOPLATIN [Suspect]
     Indication: FALLOPIAN TUBE CANCER
     Dosage: AUC5
     Dates: start: 20111116, end: 20111116
  3. PACLITAXEL [Suspect]
     Dosage: 175 MG/M2
     Dates: start: 20111116, end: 20111116

REACTIONS (13)
  - SEPSIS [None]
  - CHILLS [None]
  - PYREXIA [None]
  - HYPOTENSION [None]
  - ABDOMINAL PAIN [None]
  - DYSPNOEA [None]
  - PLEURAL EFFUSION [None]
  - HAEMATURIA [None]
  - VENTRICULAR ARRHYTHMIA [None]
  - ACIDOSIS [None]
  - MULTI-ORGAN FAILURE [None]
  - TACHYCARDIA [None]
  - VENTRICULAR HYPERKINESIA [None]
